FAERS Safety Report 19083820 (Version 2)
Quarter: 2021Q3

REPORT INFORMATION
  Report Type: Report from Study
  Country: BR (occurrence: BR)
  Receive Date: 20210401
  Receipt Date: 20210805
  Transmission Date: 20211014
  Serious: Yes (Other)
  Sender: FDA-Public Use
  Company Number: BR-TAKEDA-2021TUS019884

PATIENT
  Age: 32 Year
  Sex: Female

DRUGS (2)
  1. VEDOLIZUMAB [Suspect]
     Active Substance: VEDOLIZUMAB
     Indication: COLITIS
     Dosage: 300 MILLIGRAM
     Route: 042
     Dates: start: 20161108
  2. VEDOLIZUMAB [Suspect]
     Active Substance: VEDOLIZUMAB
     Indication: COLITIS ULCERATIVE

REACTIONS (2)
  - COVID-19 [Unknown]
  - Pregnancy [Unknown]

NARRATIVE: CASE EVENT DATE: 20210302
